FAERS Safety Report 6093822-5 (Version None)
Quarter: 2009Q1

REPORT INFORMATION
  Report Type: 
  Country: None (occurrence: None)
  Receive Date: 20090223
  Receipt Date: 20090223
  Transmission Date: 20090719
  Serious: Yes (Other)
  Sender: FDA-Public Use
  Company Number: None

PATIENT
  Age: 8 Month
  Sex: Male
  Weight: 7.2576 kg

DRUGS (5)
  1. SILDENAFIL 1MG/ML [Suspect]
     Indication: PULMONARY ARTERIAL HYPERTENSION
     Dosage: 3ML EVERY 6 HOURS PO
     Route: 048
     Dates: start: 20081201, end: 20090221
  2. ENALAPRIL 1MG/ML [Suspect]
     Indication: TRICUSPID VALVE INCOMPETENCE
     Dosage: 1.3ML TWICE DAILY PO
     Route: 048
     Dates: start: 20081205, end: 20090221
  3. FUROSEMIDE [Concomitant]
  4. ALDACTONE [Concomitant]
  5. ASPIRIN [Concomitant]

REACTIONS (1)
  - TOOTH DISCOLOURATION [None]
